FAERS Safety Report 13021564 (Version 4)
Quarter: 2017Q1

REPORT INFORMATION
  Report Type: Spontaneous
  Country: US (occurrence: US)
  Receive Date: 20161213
  Receipt Date: 20170327
  Transmission Date: 20170428
  Serious: No
  Sender: FDA-Public Use
  Company Number: US-BRISTOL-MYERS SQUIBB COMPANY-BMS-2016-103325

PATIENT
  Sex: Male

DRUGS (2)
  1. SPRYCEL [Suspect]
     Active Substance: DASATINIB
     Indication: PRODUCT USED FOR UNKNOWN INDICATION
     Dosage: 20 MG, QOD
     Route: 048
     Dates: start: 20160314
  2. SPRYCEL [Suspect]
     Active Substance: DASATINIB
     Indication: CHRONIC MYELOID LEUKAEMIA
     Dosage: 20 MG, EVERY 3 DAYS
     Route: 048
     Dates: start: 20160202

REACTIONS (5)
  - Nasopharyngitis [Unknown]
  - Dyspnoea [Unknown]
  - Headache [Recovering/Resolving]
  - Prescribed underdose [Unknown]
  - Lethargy [Unknown]
